FAERS Safety Report 8893133 (Version 1)
Quarter: 2012Q4

REPORT INFORMATION
  Report Type: Spontaneous
  Country: US (occurrence: None)
  Receive Date: 20121106
  Receipt Date: 20121106
  Transmission Date: 20130627
  Serious: Yes (Other)
  Sender: FDA-Public Use
  Company Number: None

PATIENT
  Age: 51 Year
  Sex: Female
  Weight: 48.08 kg

DRUGS (2)
  1. GAVILYTE - C TM [Suspect]
     Indication: COLONOSCOPY
     Dosage: 1 gallon  Finish in 6 hrs po
     Dates: start: 20121101, end: 20121101
  2. GAVILYTE - C TM [Suspect]
     Indication: BOWEL PREPARATION
     Dosage: 1 gallon  Finish in 6 hrs po
     Dates: start: 20121101, end: 20121101

REACTIONS (4)
  - Urticaria [None]
  - Pruritus generalised [None]
  - Middle insomnia [None]
  - Hypersensitivity [None]
